FAERS Safety Report 5741825-X (Version None)
Quarter: 2008Q2

REPORT INFORMATION
  Report Type: 
  Country: None (occurrence: None)
  Receive Date: 20080519
  Receipt Date: 20080507
  Transmission Date: 20081010
  Serious: Yes (Other)
  Sender: FDA-Public Use
  Company Number: BE-JNJFOC-20080502075

PATIENT
  Age: 86 Year
  Sex: Male
  Weight: 95 kg

DRUGS (1)
  1. DURAGESIC-100 [Suspect]
     Indication: DRUG USE FOR UNKNOWN INDICATION
     Route: 062
     Dates: start: 20080422, end: 20080423

REACTIONS (2)
  - APPLICATION SITE REACTION [None]
  - CARDIAC DISORDER [None]
